FAERS Safety Report 21037271 (Version 2)
Quarter: 2022Q3

REPORT INFORMATION
  Report Type: Spontaneous
  Country: GB (occurrence: GB)
  Receive Date: 20220703
  Receipt Date: 20220816
  Transmission Date: 20221027
  Serious: Yes (Other)
  Sender: FDA-Public Use
  Company Number: GB-NOVARTISPH-NVSC2022GB149670

PATIENT
  Sex: Male

DRUGS (1)
  1. RIVASTIGMINE [Suspect]
     Active Substance: RIVASTIGMINE
     Indication: Multiple system atrophy
     Dosage: 9.5 MG, Q24H
     Route: 062

REACTIONS (7)
  - Condition aggravated [Unknown]
  - Hallucination [Unknown]
  - Confusional state [Unknown]
  - Drug intolerance [Unknown]
  - Product use in unapproved indication [Unknown]
  - Product availability issue [Unknown]
  - Drug ineffective for unapproved indication [Unknown]
